FAERS Safety Report 8376576-9 (Version None)
Quarter: 2012Q2

REPORT INFORMATION
  Report Type: 
  Country: None (occurrence: None)
  Receive Date: 20120522
  Receipt Date: 20120518
  Transmission Date: 20120825
  Serious: Yes (Other)
  Sender: FDA-Public Use
  Company Number: US-PFIZER INC-2010085784

PATIENT
  Sex: Female
  Weight: 59.864 kg

DRUGS (17)
  1. CELEBREX [Suspect]
     Indication: ARTHRITIS
     Dosage: 200 MG, 1X/DAY
     Dates: end: 20120501
  2. LIPITOR [Suspect]
     Dosage: 40 MG, 1X/DAY
  3. CELEBREX [Suspect]
     Indication: ARTHRALGIA
  4. FUROSEMIDE [Concomitant]
     Dosage: 40 MG, DAILY
  5. OMEPRAZOLE [Concomitant]
     Indication: GASTROOESOPHAGEAL REFLUX DISEASE
     Dosage: 20 MG, 2X/DAY
     Route: 048
  6. HYDROXYCHLOROQUINE [Concomitant]
     Indication: SYSTEMIC LUPUS ERYTHEMATOSUS
  7. GABAPENTIN [Concomitant]
     Indication: PAIN
     Dosage: 300 MG, 3X/DAY
  8. LEVOTHYROXINE [Concomitant]
     Indication: HYPOTHYROIDISM
     Dosage: 50 MG, DAILY
  9. LISINOPRIL [Suspect]
     Indication: HYPERTENSION
     Dosage: 20 TO 25MG DAILY
     Dates: end: 20120501
  10. ALENDRONATE SODIUM [Concomitant]
     Indication: BONE DENSITY ABNORMAL
     Dosage: 70 MG, WEEKLY
  11. BUSPAR [Concomitant]
     Indication: ANXIETY
     Dosage: 5 MG, 3X/DAY
  12. VERAPAMIL [Concomitant]
     Indication: HYPERTENSION
     Dosage: 240 MG, 2X/DAY
  13. HYDROXYCHLOROQUINE [Concomitant]
     Indication: RHEUMATOID ARTHRITIS
     Dosage: 200 MG, 2X/DAY
  14. CYCLOBENZAPRINE [Concomitant]
     Indication: MUSCLE SPASMS
     Dosage: 5 MG, 2X/DAY
  15. PREDNISONE [Concomitant]
     Dosage: 2.5 MG, DAILY
  16. POTASSIUM [Concomitant]
     Dosage: 20 MG, DAILY
  17. LIPITOR [Concomitant]
     Indication: BLOOD CHOLESTEROL ABNORMAL
     Dosage: 40 MG, DAILY

REACTIONS (5)
  - SURGERY [None]
  - NECK PAIN [None]
  - RENAL IMPAIRMENT [None]
  - RESPIRATORY TRACT INFECTION [None]
  - LARYNGITIS [None]
